FAERS Safety Report 13299006 (Version 1)
Quarter: 2017Q1

REPORT INFORMATION
  Report Type: Spontaneous
  Country: FR (occurrence: FR)
  Receive Date: 20170306
  Receipt Date: 20170306
  Transmission Date: 20170428
  Serious: Yes (Hospitalization)
  Sender: FDA-Public Use
  Company Number: FR-SA-2017SA036058

PATIENT
  Age: 60 Year
  Sex: Male

DRUGS (4)
  1. LOVENOX [Suspect]
     Active Substance: ENOXAPARIN SODIUM
     Dosage: FREQUENCY: IN THE MORNING
     Route: 058
     Dates: start: 20170113, end: 20170203
  2. EUPRESSYL [Suspect]
     Active Substance: URAPIDIL
     Dosage: 1 TABLET IN THE MORNING AND 2 TABLETS IN THE EVENING
     Route: 048
     Dates: start: 20170119, end: 20170122
  3. EUPRESSYL [Suspect]
     Active Substance: URAPIDIL
     Dosage: 2  TABLETS IN THE MORNING AND 2 TABLETS IN THE EVENING
     Route: 048
     Dates: start: 20170123, end: 20170203
  4. EUPRESSYL [Suspect]
     Active Substance: URAPIDIL
     Dosage: 1 TABLET MORNING AND EVENING
     Route: 048
     Dates: start: 20170117, end: 20170118

REACTIONS (1)
  - Eosinophilia [Recovering/Resolving]

NARRATIVE: CASE EVENT DATE: 20170126
